FAERS Safety Report 11073626 (Version 1)
Quarter: 2015Q2

REPORT INFORMATION
  Report Type: Spontaneous
  Country: US (occurrence: US)
  Receive Date: 20150428
  Receipt Date: 20150428
  Transmission Date: 20150821
  Serious: Yes (Other)
  Sender: FDA-Public Use
  Company Number: US-SUCAMPO AG-SPI201500407

PATIENT
  Age: 65 Year
  Sex: Female
  Weight: 65.76 kg

DRUGS (2)
  1. SYNTHROID [Concomitant]
     Active Substance: LEVOTHYROXINE SODIUM
     Indication: HYPOTHYROIDISM
     Dosage: UNK
     Route: 048
  2. AMITIZA [Suspect]
     Active Substance: LUBIPROSTONE
     Indication: IRRITABLE BOWEL SYNDROME
     Dosage: 8 MCG, UNK
     Route: 048
     Dates: start: 20150412, end: 20150415

REACTIONS (12)
  - Road traffic accident [Recovered/Resolved]
  - Emotional distress [Unknown]
  - Pain [Recovered/Resolved]
  - Abdominal pain upper [Recovered/Resolved]
  - Gout [Not Recovered/Not Resolved]
  - Drug ineffective [Unknown]
  - Arthralgia [Not Recovered/Not Resolved]
  - Dizziness [Unknown]
  - Dyspnoea [Recovered/Resolved]
  - Chest discomfort [Recovered/Resolved]
  - Confusional state [Unknown]
  - Abasia [Unknown]

NARRATIVE: CASE EVENT DATE: 20150412
